FAERS Safety Report 9169390 (Version 1)
Quarter: 2013Q1

REPORT INFORMATION
  Report Type: Spontaneous
  Country: US (occurrence: US)
  Receive Date: 20130318
  Receipt Date: 20130318
  Transmission Date: 20140127
  Serious: Yes (Hospitalization)
  Sender: FDA-Public Use
  Company Number: US-009507513-1303USA006996

PATIENT
  Sex: Female

DRUGS (3)
  1. BOCEPREVIR [Suspect]
     Indication: CHRONIC HEPATITIS C
     Dosage: UNK
     Route: 065
     Dates: end: 20120914
  2. PEGASYS [Suspect]
     Indication: CHRONIC HEPATITIS C
     Dosage: 180 MICROGRAM, ONCE WEEKLY
     Route: 065
     Dates: start: 20120809, end: 20120914
  3. RIBAPAK [Suspect]
     Indication: CHRONIC HEPATITIS C
     Dosage: 1000 MG, DAILY IN DIVIDED DOSES
     Route: 065
     Dates: start: 20120809, end: 20120914

REACTIONS (9)
  - Dehydration [Unknown]
  - Fatigue [Unknown]
  - Malaise [Unknown]
  - Crying [Unknown]
  - Back pain [Unknown]
  - Hypophagia [Unknown]
  - Depression [Unknown]
  - Skin disorder [Unknown]
  - Vision blurred [Unknown]
